FAERS Safety Report 4868487-8 (Version None)
Quarter: 2005Q4

REPORT INFORMATION
  Report Type: 
  Country: None (occurrence: None)
  Receive Date: 20051223
  Receipt Date: 20051214
  Transmission Date: 20060501
  Serious: Yes (Other)
  Sender: FDA-Public Use
  Company Number: 2005168616

PATIENT
  Age: 36 Year
  Sex: Male
  Weight: 73.4827 kg

DRUGS (11)
  1. XALATAN [Suspect]
     Indication: INTRAOCULAR PRESSURE TEST
     Dosage: 1.5 MCG (1.5 MCG 1 IN 1 D) OPTHALAMIC
     Route: 047
     Dates: start: 20051101, end: 20051204
  2. MOXIFLOXACIN HCL [Suspect]
     Dosage: 1 IN 1D OPTHALAMIC
     Route: 047
     Dates: end: 20051204
  3. NEVANAC [Suspect]
     Dosage: 1 IN1 D OPTHALAMIC
     Route: 047
     Dates: end: 20051204
  4. TIMOLOL MALEATE [Suspect]
     Dosage: 4 IN 1 D OPTHALAMIC
     Route: 047
     Dates: end: 20051204
  5. PRED FORTE [Suspect]
     Dosage: 3 IN 1 D OPTHALAMIC
     Route: 047
  6. TRICOR [Concomitant]
  7. ZETIA [Concomitant]
  8. PHENOBARBITAL TAB [Concomitant]
  9. TEGRETOL [Concomitant]
  10. ZANTAC [Concomitant]
  11. LORAZEPAM [Concomitant]

REACTIONS (11)
  - ASTHMA [None]
  - CARDIAC DISORDER [None]
  - CHEST PAIN [None]
  - CONVULSION [None]
  - DRUG INTERACTION [None]
  - DYSPNOEA [None]
  - FEELING ABNORMAL [None]
  - HEADACHE [None]
  - HYPOAESTHESIA [None]
  - INTRAOCULAR PRESSURE INCREASED [None]
  - PALPITATIONS [None]
